FAERS Safety Report 5957604-4 (Version None)
Quarter: 2008Q4

REPORT INFORMATION
  Report Type: 
  Country: None (occurrence: None)
  Receive Date: 20081117
  Receipt Date: 20081117
  Transmission Date: 20090506
  Serious: Yes (Hospitalization)
  Sender: FDA-Public Use
  Company Number: None

PATIENT
  Sex: Female
  Weight: 68.9467 kg

DRUGS (1)
  1. AVANDIA [Suspect]
     Indication: TYPE 2 DIABETES MELLITUS
     Dosage: 1/2 TABLET -4 MG- DAILY PO
     Route: 048
     Dates: start: 20030401, end: 20070601

REACTIONS (3)
  - FALL [None]
  - FOOT FRACTURE [None]
  - HUMERUS FRACTURE [None]
